FAERS Safety Report 8912122 (Version 2)
Quarter: 2012Q4

REPORT INFORMATION
  Report Type: 
  Country: IT (occurrence: IT)
  Receive Date: 20121116
  Receipt Date: 20121210
  Transmission Date: 20130627
  Serious: Yes (Other)
  Sender: FDA-Public Use
  Company Number: IT-CELGENEUS-083-21880-12110833

PATIENT
  Age: 72 Year
  Sex: Male

DRUGS (4)
  1. REVLIMID [Suspect]
     Indication: MULTIPLE MYELOMA
     Dosage: 15 Milligram
     Route: 048
     Dates: start: 20120918, end: 20121009
  2. CALCIUM SANDOZ [Concomitant]
     Indication: CALCIUM DEFICIENCY
     Route: 065
     Dates: start: 20100408
  3. MEPRAL [Concomitant]
     Indication: REFLUX GASTRITIS
     Route: 065
     Dates: start: 20080509
  4. DOBETIN [Concomitant]
     Indication: VITAMIN B12 DEFICIENCY
     Route: 065
     Dates: start: 20100127

REACTIONS (1)
  - Hepatocellular carcinoma [Not Recovered/Not Resolved]
